FAERS Safety Report 4685724-3 (Version None)
Quarter: 2005Q2

REPORT INFORMATION
  Report Type: 
  Country: None (occurrence: None)
  Receive Date: 20050608
  Receipt Date: 20050526
  Transmission Date: 20051028
  Serious: Yes (Other)
  Sender: FDA-Public Use
  Company Number: 200512226BCC

PATIENT
  Sex: Male

DRUGS (2)
  1. ASPIRIN [Suspect]
     Indication: ANTICOAGULANT THERAPY
     Dosage: 325 MG QD TRANSPLACENTAL
     Route: 064
  2. ASPIRIN [Suspect]
     Indication: THERAPEUTIC PROCEDURE
     Dosage: 325 MG QD TRANSPLACENTAL
     Route: 064

REACTIONS (4)
  - DIFFICULTY IN WALKING [None]
  - SENSORY DISTURBANCE [None]
  - SENSORY INTEGRATIVE DYSFUNCTION [None]
  - SPEECH DISORDER [None]
